FAERS Safety Report 8105140-1 (Version None)
Quarter: 2012Q1

REPORT INFORMATION
  Report Type: 
  Country: None (occurrence: None)
  Receive Date: 20120201
  Receipt Date: 20120130
  Transmission Date: 20120608
  Serious: No
  Sender: FDA-Public Use
  Company Number: US-BAYER-2012-009693

PATIENT
  Sex: Female

DRUGS (3)
  1. EMOLLIENTS AND PROTECTIVES [Suspect]
     Dosage: UNK
     Route: 061
     Dates: start: 20110321
  2. FINACEA [Suspect]
     Indication: ROSACEA
     Dosage: 2 IN 1 D
     Route: 061
     Dates: start: 20110322
  3. DOXYCYCLINE [Suspect]
     Dosage: 40 MG, ONCE
     Route: 048
     Dates: start: 20110321

REACTIONS (2)
  - DIZZINESS [None]
  - NAUSEA [None]
